APPROVED DRUG PRODUCT: RENAMIN W/O ELECTROLYTES
Active Ingredient: AMINO ACIDS
Strength: 6.5% (6.5GM/100ML)
Dosage Form/Route: INJECTABLE;INJECTION
Application: N017493 | Product #007
Applicant: BAXTER HEALTHCARE CORP
Approved: Oct 15, 1982 | RLD: No | RS: No | Type: DISCN